FAERS Safety Report 14471776 (Version 2)
Quarter: 2018Q2

REPORT INFORMATION
  Report Type: Spontaneous
  Country: US (occurrence: US)
  Receive Date: 20180131
  Receipt Date: 20180430
  Transmission Date: 20180711
  Serious: Yes (Hospitalization, Other)
  Sender: FDA-Public Use
  Company Number: US-DSJP-DSU-2017-144733

PATIENT

DRUGS (1)
  1. OLMESARTAN MEDOXOMIL. [Suspect]
     Active Substance: OLMESARTAN MEDOXOMIL
     Indication: PRODUCT USED FOR UNKNOWN INDICATION
     Dosage: UNK
     Dates: start: 20100401

REACTIONS (14)
  - Gastric ulcer [Recovered/Resolved]
  - Gastrooesophageal reflux disease [Not Recovered/Not Resolved]
  - Weight decreased [Recovered/Resolved]
  - Melaena [Not Recovered/Not Resolved]
  - Gastritis [Unknown]
  - Decreased appetite [Unknown]
  - Presyncope [Not Recovered/Not Resolved]
  - Dehydration [Recovered/Resolved]
  - Duodenal ulcer [Unknown]
  - Peptic ulcer [Not Recovered/Not Resolved]
  - Peptic ulcer helicobacter [Not Recovered/Not Resolved]
  - Large intestine polyp [Not Recovered/Not Resolved]
  - Gastroduodenitis [Not Recovered/Not Resolved]
  - Diarrhoea [Recovered/Resolved]

NARRATIVE: CASE EVENT DATE: 20100401
